FAERS Safety Report 6096934-5 (Version None)
Quarter: 2009Q1

REPORT INFORMATION
  Report Type: 
  Country: None (occurrence: None)
  Receive Date: 20090227
  Receipt Date: 20090217
  Transmission Date: 20090719
  Serious: Yes (Death)
  Sender: FDA-Public Use
  Company Number: US-JNJFOC-20090200202

PATIENT
  Sex: Male
  Weight: 106.6 kg

DRUGS (14)
  1. FENTANYL TRANSDERMAL SYSTEM [Suspect]
     Route: 062
  2. FENTANYL TRANSDERMAL SYSTEM [Suspect]
     Indication: PAIN
     Route: 062
  3. OXYCODONE [Concomitant]
     Indication: PAIN
  4. SEROQUEL [Concomitant]
     Indication: ANXIETY
  5. KLONOPIN [Concomitant]
  6. VODKA [Concomitant]
  7. COCAINE [Concomitant]
  8. REMERON [Concomitant]
  9. EFFEXOR [Concomitant]
  10. EFFEXOR [Concomitant]
  11. LIBRIUM [Concomitant]
     Indication: DETOXIFICATION
  12. DEPAKOTE [Concomitant]
  13. MOTRIN [Concomitant]
     Indication: BACK PAIN
  14. SKELAXIN [Concomitant]
     Indication: BACK PAIN

REACTIONS (2)
  - CARDIOMYOPATHY [None]
  - DRUG TOXICITY [None]
